FAERS Safety Report 4733922-2 (Version None)
Quarter: 2005Q3

REPORT INFORMATION
  Report Type: 
  Country: None (occurrence: None)
  Receive Date: 20050729
  Receipt Date: 20050719
  Transmission Date: 20060218
  Serious: Yes (Other)
  Sender: FDA-Public Use
  Company Number: 200510251BWH

PATIENT
  Age: 67 Year
  Sex: Male

DRUGS (8)
  1. LEVITRA [Suspect]
     Indication: ERECTILE DYSFUNCTION
     Dosage: SEE IMAGE
     Dates: start: 20040101
  2. LEVITRA [Suspect]
     Indication: ERECTILE DYSFUNCTION
     Dosage: SEE IMAGE
     Dates: start: 20040101
  3. LEVITRA [Suspect]
     Indication: ERECTILE DYSFUNCTION
     Dosage: SEE IMAGE
     Dates: start: 20050501
  4. VITAMINS [Concomitant]
  5. LIPITOR [Concomitant]
  6. COENZYME Q10 [Concomitant]
  7. VIAGRA [Concomitant]
  8. IMMUNE BOOSTER FORMULA (NOS) [Concomitant]

REACTIONS (12)
  - CAROTID ARTERY OCCLUSION [None]
  - CEREBRAL DISORDER [None]
  - DIZZINESS [None]
  - EYE MOVEMENT DISORDER [None]
  - FEELING ABNORMAL [None]
  - HEADACHE [None]
  - INNER EAR DISORDER [None]
  - JAUNDICE [None]
  - MULTIPLE SCLEROSIS [None]
  - NAUSEA [None]
  - VIRAL INFECTION [None]
  - VOMITING [None]
